FAERS Safety Report 23535994 (Version 1)
Quarter: 2024Q1

REPORT INFORMATION
  Report Type: Spontaneous
  Country: GB (occurrence: GB)
  Receive Date: 20240219
  Receipt Date: 20240219
  Transmission Date: 20240410
  Serious: Yes (Other)
  Sender: FDA-Public Use
  Company Number: None

PATIENT
  Age: 45 Year
  Sex: Female
  Weight: 62 kg

DRUGS (1)
  1. PROPRANOLOL [Suspect]
     Active Substance: PROPRANOLOL HYDROCHLORIDE
     Indication: Adverse drug reaction
     Dosage: SUSTAINED RELEASE
     Route: 065
     Dates: end: 20240205

REACTIONS (12)
  - Peripheral coldness [Recovered/Resolved]
  - Medication error [Unknown]
  - Anxiety [Recovered/Resolved]
  - Palpitations [Recovered/Resolved]
  - Sleep disorder [Recovered/Resolved]
  - Presyncope [Recovered/Resolved]
  - Dyspepsia [Recovered/Resolved]
  - Depression [Recovered/Resolved]
  - Dizziness postural [Recovered/Resolved]
  - Fatigue [Recovered/Resolved]
  - Sleep terror [Recovered/Resolved]
  - Chest discomfort [Recovered/Resolved]

NARRATIVE: CASE EVENT DATE: 20231231
